FAERS Safety Report 16476810 (Version 1)
Quarter: 2019Q2

REPORT INFORMATION
  Report Type: Spontaneous
  Country: JP (occurrence: JP)
  Receive Date: 20190626
  Receipt Date: 20190626
  Transmission Date: 20190711
  Serious: Yes (Other)
  Sender: FDA-Public Use
  Company Number: JP-GLAXOSMITHKLINE-JP2019JPN112089

PATIENT
  Sex: Female

DRUGS (3)
  1. RELVAR ELLIPTA [Suspect]
     Active Substance: FLUTICASONE FUROATE\VILANTEROL TRIFENATATE
     Indication: COUGH
     Dosage: UNK
     Route: 055
  2. MAINTATE [Concomitant]
     Active Substance: BISOPROLOL FUMARATE
     Dosage: UNK
  3. FLUTIDE DISKUS [Suspect]
     Active Substance: FLUTICASONE PROPIONATE
     Indication: COUGH
     Dosage: 100 ?G, QD (AT NIGHT)
     Route: 055

REACTIONS (7)
  - Blood pressure systolic decreased [Unknown]
  - Circumstance or information capable of leading to medication error [Unknown]
  - Osteoporosis [Unknown]
  - Atrial fibrillation [Unknown]
  - Productive cough [Unknown]
  - Underdose [Unknown]
  - Product use issue [Unknown]
